FAERS Safety Report 8347340-1 (Version None)
Quarter: 2012Q2

REPORT INFORMATION
  Report Type: 
  Country: None (occurrence: None)
  Receive Date: 20120509
  Receipt Date: 20120502
  Transmission Date: 20120825
  Serious: Yes (Life-Threatening, Hospitalization)
  Sender: FDA-Public Use
  Company Number: BR-ROCHE-696641

PATIENT
  Sex: Male
  Weight: 82 kg

DRUGS (76)
  1. ONDANSETRON [Concomitant]
     Indication: PROPHYLAXIS OF NAUSEA AND VOMITING
     Dates: start: 20100310, end: 20100403
  2. ONDANSETRON [Concomitant]
     Dates: start: 20100501, end: 20100504
  3. LEVOTHYROXINE SODIUM [Concomitant]
     Dates: start: 20100502, end: 20100502
  4. OMEPRAZOLE [Concomitant]
     Dates: start: 20100430, end: 20100509
  5. DRAMIN [Concomitant]
     Indication: PROPHYLAXIS OF NAUSEA AND VOMITING
     Dates: start: 20100202, end: 20100403
  6. MAGNESIUM OXIDE [Concomitant]
     Indication: PROPHYLAXIS
     Dates: start: 20100428, end: 20100428
  7. DIPYRONE TAB [Concomitant]
     Dates: start: 20100410, end: 20100413
  8. DIPYRONE TAB [Concomitant]
     Dates: start: 20100508, end: 20100508
  9. CLOBUTINOL [Concomitant]
     Indication: PAIN PROPHYLAXIS
     Dates: start: 20100428, end: 20100428
  10. SODIUM CHLORIDE [Concomitant]
     Indication: PROPHYLAXIS
     Dates: start: 20100409, end: 20100412
  11. ROFERON-A [Suspect]
     Indication: RENAL CELL CARCINOMA
     Route: 058
  12. GLYBURIDE [Concomitant]
     Indication: DIABETES MELLITUS
     Dates: start: 20100128, end: 20100403
  13. GLYBURIDE [Concomitant]
     Dates: start: 20100414, end: 20100424
  14. GLYBURIDE [Concomitant]
     Dates: start: 20100502, end: 20100503
  15. LEVOTHYROXINE SODIUM [Concomitant]
     Dates: start: 20100429, end: 20100429
  16. HEPARIN [Concomitant]
     Indication: THROMBOSIS PROPHYLAXIS
     Dates: start: 20100412, end: 20100412
  17. HEPARIN [Concomitant]
     Dates: start: 20100425, end: 20100425
  18. DIMETICONE [Concomitant]
     Indication: PROPHYLAXIS
     Dates: start: 20100501, end: 20100508
  19. SODIUM CHLORIDE [Concomitant]
     Dates: start: 20100425, end: 20100428
  20. GLYBURIDE [Concomitant]
     Dates: start: 20100427, end: 20100427
  21. DORFLEX [Concomitant]
     Dates: start: 20100414, end: 20100424
  22. PAROXETINE [Concomitant]
     Dates: start: 20100427, end: 20100429
  23. DOMPERIDONE [Concomitant]
     Dates: start: 20100414, end: 20100424
  24. BETAHISTINE [Concomitant]
     Dates: start: 20100414, end: 20100424
  25. BETAHISTINE [Concomitant]
     Dates: start: 20100510
  26. LEVOTHYROXINE SODIUM [Concomitant]
     Dates: start: 20100427, end: 20100427
  27. OMEPRAZOLE [Concomitant]
     Dates: start: 20100425, end: 20100425
  28. DRAMIN [Concomitant]
     Dates: start: 20100414, end: 20100424
  29. CLORPROMAZINA [Concomitant]
     Indication: PROPHYLAXIS
     Dates: start: 20100428, end: 20100429
  30. MINERAL OIL [Concomitant]
     Indication: PROPHYLAXIS
     Dates: start: 20100501, end: 20100503
  31. IPRATROPIUM BROMIDE [Concomitant]
     Dates: start: 20100428, end: 20100428
  32. HALOPERIDOL [Concomitant]
     Dates: start: 20100506, end: 20100509
  33. AVASTIN [Suspect]
     Indication: RENAL CELL CARCINOMA
     Dosage: FREQUENCY REPORTED EVERY OTHER WEEK
     Route: 042
     Dates: start: 20091216, end: 20100324
  34. ROFERON-A [Suspect]
     Dosage: DOSE REDUCED  DOSE: 6MU SINCE CYCLE 4
     Route: 042
  35. GLYBURIDE [Concomitant]
     Dates: start: 20100429, end: 20100429
  36. PAROXETINE [Concomitant]
     Dates: start: 20100502, end: 20100502
  37. PAROXETINE [Concomitant]
     Dates: start: 20100504, end: 20100507
  38. DOMPERIDONE [Concomitant]
     Dates: start: 20100506, end: 20100509
  39. LEVOTHYROXINE SODIUM [Concomitant]
     Dates: start: 20100407, end: 20100408
  40. LEVOTHYROXINE SODIUM [Concomitant]
     Dates: start: 20100504
  41. TRAMADOL HYDROCHLORIDE [Concomitant]
     Indication: PROPHYLAXIS
     Dates: start: 20100425, end: 20100425
  42. DIPYRONE TAB [Concomitant]
     Dates: start: 20100504, end: 20100504
  43. TRIGLYCERIDES [Concomitant]
     Indication: PROPHYLAXIS
     Dates: start: 20100503, end: 20100509
  44. HALOPERIDOL [Concomitant]
     Indication: PROPHYLAXIS
     Dates: start: 20100503, end: 20100503
  45. GLYBURIDE [Concomitant]
     Dates: start: 20100405, end: 20100405
  46. PAROXETINE [Concomitant]
     Indication: DEPRESSION
     Dates: start: 20091230, end: 20100405
  47. PAROXETINE [Concomitant]
     Dates: start: 20100509
  48. BROMAZEPAM [Concomitant]
     Dates: start: 20100427, end: 20100428
  49. ATROVENT [Concomitant]
     Indication: PROPHYLAXIS
     Dates: start: 20100428, end: 20100428
  50. DOMPERIDONE [Concomitant]
     Indication: PROPHYLAXIS
     Dates: start: 20100506, end: 20100509
  51. DRAMIN [Concomitant]
     Route: 065
     Dates: start: 20100414
  52. DORFLEX [Concomitant]
     Indication: PAIN PROPHYLAXIS
     Dates: start: 20100103, end: 20100403
  53. ONDANSETRON [Concomitant]
     Dates: start: 20100407, end: 20100408
  54. BETAHISTINE [Concomitant]
     Indication: DIZZINESS
     Dates: start: 20100324, end: 20100406
  55. LEVOTHYROXINE SODIUM [Concomitant]
     Dates: start: 20100414, end: 20100424
  56. BROMAZEPAM [Concomitant]
     Dates: start: 20100414
  57. DIPYRONE TAB [Concomitant]
     Dates: start: 20100501, end: 20100502
  58. BROMOPRIDE [Concomitant]
     Indication: PROPHYLAXIS
     Dates: start: 20100430, end: 20100506
  59. LORAZEPAM [Concomitant]
     Indication: PROPHYLAXIS
     Dates: start: 20100501, end: 20100502
  60. IPRATROPIUM BROMIDE [Concomitant]
     Indication: PROPHYLAXIS
     Dates: start: 20100501, end: 20100509
  61. GLYBURIDE [Concomitant]
     Dates: start: 20100407, end: 20100408
  62. GLYBURIDE [Concomitant]
     Dates: start: 20100510
  63. PAROXETINE [Concomitant]
     Dates: start: 20100414, end: 20100424
  64. ONDANSETRON [Concomitant]
     Dates: start: 20100414, end: 20100424
  65. DOMPERIDONE [Concomitant]
     Indication: PROPHYLAXIS OF NAUSEA AND VOMITING
     Dates: start: 20100324, end: 20100408
  66. LEVOTHYROXINE SODIUM [Concomitant]
     Indication: HYPOTHYROIDISM
     Dates: start: 20080101, end: 20100404
  67. DIPYRONE TAB [Concomitant]
     Dates: start: 20100425, end: 20100429
  68. FENOTEROL [Concomitant]
     Indication: PROPHYLAXIS
     Dates: start: 20100501, end: 20100509
  69. DEXPANTHENOL [Concomitant]
     Indication: PROPHYLAXIS
     Dates: start: 20100506, end: 20100509
  70. DRAMIN [Concomitant]
     Indication: PROPHYLAXIS
     Route: 065
     Dates: start: 20100202, end: 20100403
  71. BROMAZEPAM [Concomitant]
     Indication: PROPHYLAXIS
     Dates: start: 20100412, end: 20100412
  72. OMEPRAZOLE [Concomitant]
     Indication: DYSPEPSIA
     Dates: start: 20100411, end: 20100412
  73. HEPARIN [Concomitant]
     Dates: start: 20100430, end: 20100509
  74. DIPYRONE TAB [Concomitant]
     Indication: PROPHYLAXIS
     Dates: start: 20100403
  75. IPRATROPIUM BROMIDE [Concomitant]
     Dates: start: 20100501, end: 20100509
  76. GLICERINA [Concomitant]
     Indication: PROPHYLAXIS
     Dates: start: 20100502, end: 20100504

REACTIONS (4)
  - PERITONITIS [None]
  - INTESTINAL FISTULA [None]
  - APPENDICITIS [None]
  - GASTROINTESTINAL PERFORATION [None]
